FAERS Safety Report 10150756 (Version 1)
Quarter: 2014Q2

REPORT INFORMATION
  Report Type: Spontaneous
  Country: US (occurrence: US)
  Receive Date: 20140502
  Receipt Date: 20140502
  Transmission Date: 20141212
  Serious: No
  Sender: FDA-Public Use
  Company Number: US-ASTRAZENECA-2013SE33583

PATIENT
  Age: 48 Year
  Sex: Male

DRUGS (8)
  1. PRILOSEC OTC [Suspect]
     Indication: DYSPEPSIA
     Route: 048
     Dates: start: 20130430, end: 20130501
  2. PRILOSEC OTC [Suspect]
     Indication: DYSPEPSIA
     Dosage: TOOK 2 TABLETS TODAY
     Route: 048
     Dates: start: 20130501
  3. ALLERGY SHOTS [Concomitant]
  4. BENICAR [Concomitant]
  5. ALLEGRA [Concomitant]
  6. BABY ASPIRIN [Concomitant]
  7. MULTIVITAMIN [Concomitant]
  8. FISH OIL [Concomitant]

REACTIONS (5)
  - Asthenia [Not Recovered/Not Resolved]
  - Diarrhoea [Recovered/Resolved]
  - Nausea [Recovered/Resolved]
  - Lethargy [Not Recovered/Not Resolved]
  - Inappropriate schedule of drug administration [Unknown]
